FAERS Safety Report 11745518 (Version 1)
Quarter: 2015Q4

REPORT INFORMATION
  Report Type: Spontaneous
  Country: US (occurrence: None)
  Receive Date: 20151116
  Receipt Date: 20151116
  Transmission Date: 20160304
  Serious: Yes (Other)
  Sender: FDA-Public Use
  Company Number: None

PATIENT
  Age: 26 Year
  Sex: Female
  Weight: 47.63 kg

DRUGS (1)
  1. CHLOROQUINE PH 500MG ALAREN [Suspect]
     Active Substance: CHLOROQUINE PHOSPHATE
     Indication: MALARIA PROPHYLAXIS
     Dosage: 1 TABLET 500 MG 1 PILL WEEKLY TAKEN BY MOUTH
     Route: 048
     Dates: start: 20150326, end: 20150409

REACTIONS (5)
  - Hypoaesthesia [None]
  - Ageusia [None]
  - Anosmia [None]
  - Drug hypersensitivity [None]
  - Drug ineffective [None]

NARRATIVE: CASE EVENT DATE: 20150410
